FAERS Safety Report 7005098-2 (Version None)
Quarter: 2010Q3

REPORT INFORMATION
  Report Type: 
  Country: None (occurrence: None)
  Receive Date: 20100921
  Receipt Date: 20100913
  Transmission Date: 20110219
  Serious: Yes (Hospitalization)
  Sender: FDA-Public Use
  Company Number: FR-SANOFI-AVENTIS-2010SA055051

PATIENT
  Age: 52 Year
  Sex: Female

DRUGS (6)
  1. METRONIDAZOLE [Suspect]
     Indication: CLOSTRIDIUM DIFFICILE COLITIS
     Route: 048
     Dates: start: 20091023, end: 20091104
  2. PLAQUENIL [Suspect]
     Route: 048
  3. LAMOTRIGINE [Concomitant]
     Indication: BIPOLAR DISORDER
     Route: 048
     Dates: start: 20090601, end: 20091026
  4. CIFLOX [Concomitant]
     Indication: CLOSTRIDIUM DIFFICILE COLITIS
     Route: 048
     Dates: start: 20091023, end: 20091104
  5. ROCEPHIN [Concomitant]
     Dates: start: 20091028, end: 20091104
  6. VANCOMYCIN HCL [Concomitant]
     Dates: start: 20091029, end: 20091104

REACTIONS (1)
  - NEUROPATHY PERIPHERAL [None]
